FAERS Safety Report 7552196-0 (Version None)
Quarter: 2011Q2

REPORT INFORMATION
  Report Type: 
  Country: None (occurrence: None)
  Receive Date: 20110616
  Receipt Date: 20110613
  Transmission Date: 20111010
  Serious: Yes (Other)
  Sender: FDA-Public Use
  Company Number: GB-MERCK-1106GBR00054

PATIENT
  Age: 65 Year
  Sex: Male
  Weight: 78 kg

DRUGS (8)
  1. JANUVIA [Suspect]
     Route: 048
     Dates: start: 20110131, end: 20110512
  2. ASPIRIN [Concomitant]
     Route: 065
     Dates: start: 20110131
  3. ATENOLOL [Concomitant]
     Route: 065
     Dates: start: 20110331
  4. OMEPRAZOLE [Concomitant]
     Route: 065
     Dates: start: 20110131
  5. OXYBUTYNIN [Concomitant]
     Route: 065
     Dates: start: 20110131
  6. GLICLAZIDE [Concomitant]
     Route: 065
     Dates: start: 20110131
  7. SIMVASTATIN [Concomitant]
     Route: 048
     Dates: start: 20110131, end: 20110512
  8. DIHYDROCODEINE [Concomitant]
     Route: 065
     Dates: start: 20110131

REACTIONS (4)
  - PANCREATITIS [None]
  - BLOOD AMYLASE INCREASED [None]
  - DECREASED APPETITE [None]
  - ABDOMINAL PAIN UPPER [None]
